FAERS Safety Report 18935270 (Version 3)
Quarter: 2022Q1

REPORT INFORMATION
  Report Type: Report from Study
  Country: US (occurrence: US)
  Receive Date: 20210224
  Receipt Date: 20220209
  Transmission Date: 20220423
  Serious: No
  Sender: FDA-Public Use
  Company Number: US-HRARD-202000916

PATIENT
  Sex: Female

DRUGS (3)
  1. LYSODREN [Suspect]
     Active Substance: MITOTANE
     Route: 048
     Dates: start: 20201019, end: 2020
  2. LYSODREN [Suspect]
     Active Substance: MITOTANE
     Route: 048
     Dates: start: 2020
  3. LYSODREN [Suspect]
     Active Substance: MITOTANE
     Dosage: 2000 MG BID
     Route: 048
     Dates: start: 20201020, end: 202108

REACTIONS (5)
  - Bone pain [Unknown]
  - Depression [Unknown]
  - Fatigue [Unknown]
  - Diarrhoea [Unknown]
  - Intentional dose omission [Recovered/Resolved]

NARRATIVE: CASE EVENT DATE: 20200101
